FAERS Safety Report 22214166 (Version 1)
Quarter: 2023Q2

REPORT INFORMATION
  Report Type: Spontaneous
  Country: IN (occurrence: IN)
  Receive Date: 20230414
  Receipt Date: 20230414
  Transmission Date: 20230722
  Serious: Yes (Other)
  Sender: FDA-Public Use
  Company Number: IN-BAYER-2023A046994

PATIENT
  Sex: Male

DRUGS (1)
  1. VERICIGUAT HYDROCHLORIDE [Suspect]
     Active Substance: VERICIGUAT HYDROCHLORIDE
     Indication: Cardiac failure
     Dosage: 2.5 MG

REACTIONS (3)
  - Dizziness [Recovered/Resolved]
  - Vertigo [Recovered/Resolved]
  - Limb discomfort [Recovered/Resolved]
